FAERS Safety Report 7365085-1 (Version None)
Quarter: 2011Q1

REPORT INFORMATION
  Report Type: 
  Country: None (occurrence: None)
  Receive Date: 20110321
  Receipt Date: 20110317
  Transmission Date: 20110831
  Serious: Yes (Other)
  Sender: FDA-Public Use
  Company Number: TR-ROXANE LABORATORIES, INC.-2011-RO-00371RO

PATIENT
  Age: 48 Year
  Sex: Female

DRUGS (2)
  1. IPRATROPIUM BROMIDE [Suspect]
     Route: 055
  2. SALBUTAMOL [Suspect]
     Route: 055

REACTIONS (1)
  - PUPILS UNEQUAL [None]
